FAERS Safety Report 6471079-0 (Version None)
Quarter: 2009Q4

REPORT INFORMATION
  Report Type: 
  Country: None (occurrence: None)
  Receive Date: 20091119
  Receipt Date: 20090807
  Transmission Date: 20100525
  Serious: No
  Sender: FDA-Public Use
  Company Number: WAES 0908USA01128

PATIENT
  Age: 63 Year
  Sex: Female

DRUGS (5)
  1. JANUVIA [Suspect]
     Indication: DIABETES MELLITUS
     Dosage: 100 MG/DAILY/PO
     Route: 048
     Dates: start: 20090724
  2. BYETTA [Concomitant]
  3. GLUCOPHAGE [Concomitant]
  4. TRAMADOL HCL [Concomitant]
  5. GASTROINTESTINAL PREPARATIONS [Concomitant]

REACTIONS (3)
  - EATING DISORDER [None]
  - GAIT DISTURBANCE [None]
  - JOINT SWELLING [None]
